FAERS Safety Report 6294016-0 (Version None)
Quarter: 2009Q3

REPORT INFORMATION
  Report Type: 
  Country: None (occurrence: None)
  Receive Date: 20090803
  Receipt Date: 20080724
  Transmission Date: 20100115
  Serious: No
  Sender: FDA-Public Use
  Company Number: A0739393A

PATIENT
  Age: 40 Year
  Sex: Female

DRUGS (1)
  1. NICORETTE [Suspect]
     Dates: start: 20080723, end: 20080723

REACTIONS (3)
  - DYSGEUSIA [None]
  - NAUSEA [None]
  - VOMITING [None]
